FAERS Safety Report 16366167 (Version 6)
Quarter: 2019Q3

REPORT INFORMATION
  Report Type: Spontaneous
  Country: JP (occurrence: JP)
  Receive Date: 20190529
  Receipt Date: 20190809
  Transmission Date: 20191004
  Serious: Yes (Death, Life-Threatening, Hospitalization)
  Sender: FDA-Public Use
  Company Number: JP-JNJFOC-20190438226

PATIENT
  Age: 80 Year
  Sex: Male
  Weight: 54 kg

DRUGS (6)
  1. REVLIMID [Concomitant]
     Active Substance: LENALIDOMIDE
     Indication: PRODUCT USED FOR UNKNOWN INDICATION
     Route: 048
     Dates: start: 20190511, end: 201905
  2. DARZALEX [Suspect]
     Active Substance: DARATUMUMAB
     Indication: PLASMA CELL MYELOMA
     Dosage: THERAPY END DATE: 09-MAY-2019
     Route: 041
     Dates: start: 20190411, end: 20190509
  3. PREDONINE [Suspect]
     Active Substance: PREDNISOLONE
     Indication: INTERSTITIAL LUNG DISEASE
     Dosage: END DATE: 09-JUN-2019
     Route: 048
     Dates: start: 20190418
  4. DECADRON                           /00016002/ [Suspect]
     Active Substance: DEXAMETHASONE
     Indication: PLASMA CELL MYELOMA
     Route: 042
     Dates: start: 20181025, end: 20190509
  5. REVLIMID [Concomitant]
     Active Substance: LENALIDOMIDE
     Route: 048
     Dates: start: 201905, end: 201905
  6. REVLIMID [Concomitant]
     Active Substance: LENALIDOMIDE
     Route: 048
     Dates: start: 20190411

REACTIONS (7)
  - Aspergillus infection [Fatal]
  - Infusion related reaction [Recovered/Resolved]
  - Pancytopenia [Fatal]
  - Urticaria [Recovered/Resolved]
  - Cytomegalovirus viraemia [Fatal]
  - Multiple organ dysfunction syndrome [Fatal]
  - Interstitial lung disease [Fatal]

NARRATIVE: CASE EVENT DATE: 20190411
